FAERS Safety Report 15364972 (Version 1)
Quarter: 2018Q3

REPORT INFORMATION
  Report Type: Spontaneous
  Country: US (occurrence: US)
  Receive Date: 20180910
  Receipt Date: 20180910
  Transmission Date: 20181010
  Serious: No
  Sender: FDA-Public Use
  Company Number: US-BIOGEN-2018BI00616033

PATIENT
  Sex: Female

DRUGS (1)
  1. TECFIDERA [Suspect]
     Active Substance: DIMETHYL FUMARATE
     Indication: MULTIPLE SCLEROSIS
     Route: 065
     Dates: start: 20180807

REACTIONS (6)
  - Gastrooesophageal reflux disease [Recovered/Resolved]
  - Pruritus [Unknown]
  - Flushing [Recovered/Resolved]
  - Flatulence [Not Recovered/Not Resolved]
  - Prescribed underdose [Unknown]
  - Gastrointestinal disorder [Recovered/Resolved]
